FAERS Safety Report 21576706 (Version 1)
Quarter: 2022Q4

REPORT INFORMATION
  Report Type: Spontaneous
  Country: US (occurrence: US)
  Receive Date: 20221110
  Receipt Date: 20221110
  Transmission Date: 20230113
  Serious: Yes (Other)
  Sender: FDA-Public Use
  Company Number: US-SANOFI-01349064

PATIENT
  Age: 60 Year
  Sex: Female

DRUGS (2)
  1. PLAVIX [Suspect]
     Active Substance: CLOPIDOGREL BISULFATE
     Indication: Postoperative care
     Dosage: 90 MG, QD
     Dates: start: 202209
  2. ASPIRIN [Suspect]
     Active Substance: ASPIRIN
     Indication: Postoperative care
     Dosage: 81 MG
     Dates: start: 202209

REACTIONS (3)
  - Polycythaemia vera [Unknown]
  - White blood cell count decreased [Unknown]
  - Haematocrit decreased [Unknown]
